FAERS Safety Report 5114765-7 (Version None)
Quarter: 2006Q3

REPORT INFORMATION
  Report Type: 
  Country: None (occurrence: None)
  Receive Date: 20060922
  Receipt Date: 20060922
  Transmission Date: 20061208
  Serious: No
  Sender: FDA-Public Use
  Company Number: None

PATIENT
  Age: 30 Year
  Sex: Female
  Weight: 50.1225 kg

DRUGS (1)
  1. COPPER T MODEL TCU 380A [Suspect]

REACTIONS (2)
  - LARGE INTESTINE PERFORATION [None]
  - UTERINE PERFORATION [None]
